FAERS Safety Report 8434873-2 (Version None)
Quarter: 2012Q2

REPORT INFORMATION
  Report Type: 
  Country: None (occurrence: None)
  Receive Date: 20120611
  Receipt Date: 20120611
  Transmission Date: 20120825
  Serious: No
  Sender: FDA-Public Use
  Company Number: None

PATIENT
  Sex: Female

DRUGS (1)
  1. FORTEO [Suspect]
     Dosage: 600 MCG/2.4ML SC  INJECT 20MCG SUBCUTANEOUSLY EVERY DAY AS DIRECTED  **EXPIRES 28 DAYS AFTER OPENING
     Route: 058
     Dates: start: 20120418

REACTIONS (2)
  - TOOTH INFECTION [None]
  - GINGIVAL INFECTION [None]
